FAERS Safety Report 23438472 (Version 1)
Quarter: 2024Q1

REPORT INFORMATION
  Report Type: Report from Study
  Country: CA (occurrence: CA)
  Receive Date: 20240124
  Receipt Date: 20240124
  Transmission Date: 20240410
  Serious: Yes (Other)
  Sender: FDA-Public Use
  Company Number: CA-GLAXOSMITHKLINE-CA2023168885

PATIENT

DRUGS (4)
  1. MEPOLIZUMAB [Suspect]
     Active Substance: MEPOLIZUMAB
     Indication: Asthma
     Dosage: 100 MG, Q4W
     Route: 058
     Dates: start: 20220120
  2. SYMBICORT [Concomitant]
     Active Substance: BUDESONIDE\FORMOTEROL FUMARATE DIHYDRATE
     Indication: Product used for unknown indication
     Dosage: 2 PUFF(S), BID, MAX 8
     Dates: start: 2020
  3. SPIRIVA [Concomitant]
     Active Substance: TIOTROPIUM BROMIDE MONOHYDRATE
     Indication: Product used for unknown indication
     Dosage: 2 PUFF(S), QD,SPIRIVA RESPIMAT SINCE JULY
     Dates: start: 202307
  4. MONTELUKAST [Concomitant]
     Active Substance: MONTELUKAST SODIUM
     Indication: Product used for unknown indication
     Dosage: UNK SINCE 4 MONTHS

REACTIONS (15)
  - Autoimmune disorder [Unknown]
  - Rash [Not Recovered/Not Resolved]
  - Dyspnoea [Unknown]
  - Eye irritation [Unknown]
  - Respiration abnormal [Unknown]
  - Cough [Unknown]
  - Sputum increased [Unknown]
  - Hyperhidrosis [Unknown]
  - Arthralgia [Unknown]
  - Feeling hot [Unknown]
  - Nocturnal dyspnoea [Unknown]
  - Malaise [Unknown]
  - Genital lesion [Unknown]
  - Lichen planus [Unknown]
  - Product dose omission issue [Unknown]

NARRATIVE: CASE EVENT DATE: 20231001
